FAERS Safety Report 13486350 (Version 1)
Quarter: 2017Q2

REPORT INFORMATION
  Report Type: Not Available
  Country: US (occurrence: US)
  Receive Date: 20170426
  Receipt Date: 20170426
  Transmission Date: 20170830
  Serious: No
  Sender: FDA-Public Use
  Company Number: US-ECOLAB-2016-US-005950

PATIENT
  Age: 73 Year
  Sex: Female
  Weight: 113.4 kg

DRUGS (3)
  1. LOSARTAN. [Concomitant]
     Active Substance: LOSARTAN
     Dosage: UNKNOWN
  2. METOPROLOL. [Concomitant]
     Active Substance: METOPROLOL
     Dosage: UNKNOWN
  3. SCRUB-STAT [Suspect]
     Active Substance: CHLORHEXIDINE GLUCONATE
     Dosage: UNKNOWN
     Route: 061
     Dates: start: 20160811

REACTIONS (3)
  - Eye irritation [Recovered/Resolved]
  - Vision blurred [Recovering/Resolving]
  - Accidental exposure to product [Unknown]

NARRATIVE: CASE EVENT DATE: 20160811
